FAERS Safety Report 24370561 (Version 1)
Quarter: 2024Q3

REPORT INFORMATION
  Report Type: Spontaneous
  Country: DE (occurrence: DE)
  Receive Date: 20240927
  Receipt Date: 20240927
  Transmission Date: 20241016
  Serious: Yes (Other)
  Sender: BRISTOL MYERS SQUIBB
  Company Number: DE-BRISTOL-MYERS SQUIBB COMPANY-2024-151676

PATIENT
  Age: 80 Year
  Sex: Female

DRUGS (2)
  1. NIVOLUMAB [Suspect]
     Active Substance: NIVOLUMAB
     Indication: Malignant melanoma
     Dates: start: 20230629
  2. NIVOLUMAB [Suspect]
     Active Substance: NIVOLUMAB
     Dates: start: 20240725

REACTIONS (10)
  - Pulmonary mass [Unknown]
  - Pulmonary fibrosis [Unknown]
  - Cholestasis [Unknown]
  - Hydrocholecystis [Unknown]
  - Cholangitis [Unknown]
  - Metastatic malignant melanoma [Unknown]
  - Fall [Unknown]
  - Confusional state [Unknown]
  - Haemorrhage intracranial [Unknown]
  - Metastases to central nervous system [Unknown]

NARRATIVE: CASE EVENT DATE: 20240409
